FAERS Safety Report 9157490 (Version 3)
Quarter: 2013Q3

REPORT INFORMATION
  Report Type: Spontaneous
  Country: US (occurrence: None)
  Receive Date: 20130214
  Receipt Date: 20130815
  Transmission Date: 20140515
  Serious: Yes (Other)
  Sender: FDA-Public Use
  Company Number: ADR-2012-00722

PATIENT
  Sex: Female

DRUGS (1)
  1. LIORESAL [Suspect]
     Indication: MUSCLE SPASTICITY

REACTIONS (19)
  - Drug withdrawal syndrome [None]
  - Device connection issue [None]
  - Device computer issue [None]
  - Hip fracture [None]
  - Balance disorder [None]
  - Fall [None]
  - Dysarthria [None]
  - Incontinence [None]
  - Multiple sclerosis [None]
  - Device failure [None]
  - Diarrhoea [None]
  - Vomiting [None]
  - Hyperhidrosis [None]
  - Sensory disturbance [None]
  - Feeling abnormal [None]
  - Walking aid user [None]
  - Pneumonia [None]
  - Pain [None]
  - Nerve compression [None]
